FAERS Safety Report 6636842-1 (Version None)
Quarter: 2010Q1

REPORT INFORMATION
  Report Type: 
  Country: None (occurrence: None)
  Receive Date: 20100316
  Receipt Date: 20100311
  Transmission Date: 20100710
  Serious: Yes (Hospitalization, Other)
  Sender: FDA-Public Use
  Company Number: IT-ROXANE LABORATORIES, INC.-2010-RO-00253RO

PATIENT
  Age: 48 Year
  Sex: Female

DRUGS (9)
  1. MORPHINE [Suspect]
     Indication: CANCER PAIN
     Route: 042
  2. MORPHINE [Suspect]
     Indication: BREAKTHROUGH PAIN
     Dosage: 60 MG
     Route: 042
  3. MORPHINE [Suspect]
     Route: 048
  4. MORPHINE [Suspect]
     Route: 042
  5. FENTANYL [Suspect]
     Indication: CANCER PAIN
     Route: 062
  6. OXYCODONE HCL EXTENDED-RELEASE [Suspect]
     Indication: CANCER PAIN
     Dosage: 120 MG
  7. OXYCODONE HCL EXTENDED-RELEASE [Suspect]
     Dosage: 30 MG
     Route: 048
  8. DEXAMETHASONE [Concomitant]
     Dosage: 8 MG
  9. LEVOMEPROMAZINE [Concomitant]

REACTIONS (2)
  - DISEASE PROGRESSION [None]
  - NARCOTIC INTOXICATION [None]
